FAERS Safety Report 5660165-0 (Version None)
Quarter: 2008Q1

REPORT INFORMATION
  Report Type: 
  Country: None (occurrence: None)
  Receive Date: 20080310
  Receipt Date: 20080310
  Transmission Date: 20080703
  Serious: No
  Sender: FDA-Public Use
  Company Number: None

PATIENT
  Age: 53 Year
  Sex: Female
  Weight: 77.1115 kg

DRUGS (1)
  1. LEVAQUIN [Suspect]
     Indication: RESPIRATORY DISORDER
     Dosage: 1 PILL -500MG-  1 TIME PER DAY PO
     Route: 048
     Dates: start: 20080129, end: 20080207

REACTIONS (6)
  - ARTHRALGIA [None]
  - CARTILAGE INJURY [None]
  - DRUG TOXICITY [None]
  - GAIT DISTURBANCE [None]
  - JOINT SWELLING [None]
  - MENISCUS LESION [None]
